FAERS Safety Report 12488884 (Version 3)
Quarter: 2016Q4

REPORT INFORMATION
  Report Type: Spontaneous
  Country: JP (occurrence: JP)
  Receive Date: 20160622
  Receipt Date: 20161220
  Transmission Date: 20170207
  Serious: Yes (Death, Life-Threatening, Disabling, Other)
  Sender: FDA-Public Use
  Company Number: JP-MALLINCKRODT-T201602600

PATIENT
  Age: 40 Year
  Sex: Female
  Weight: 52 kg

DRUGS (34)
  1. METHADONE [Suspect]
     Active Substance: METHADONE HYDROCHLORIDE
     Dosage: 5 MG, 5 MG DAILY DOSE
     Route: 048
     Dates: start: 20141227, end: 20141228
  2. OXIFAST [Concomitant]
     Active Substance: OXYCODONE
     Dosage: 192 MG
     Route: 051
     Dates: end: 20141126
  3. OXIFAST [Concomitant]
     Active Substance: OXYCODONE
     Dosage: 24 MG
     Route: 051
     Dates: start: 20141204, end: 20141210
  4. NEXIUM [Concomitant]
     Active Substance: ESOMEPRAZOLE MAGNESIUM
     Dosage: 20 MG
     Route: 048
     Dates: start: 20141127, end: 20141228
  5. KN NO.3 [Concomitant]
     Active Substance: DEXTROSE\POTASSIUM CHLORIDE\SODIUM CHLORIDE\SODIUM LACTATE
     Dosage: 500 ML
     Route: 051
     Dates: start: 20141127, end: 20141210
  6. METHADONE [Suspect]
     Active Substance: METHADONE HYDROCHLORIDE
     Indication: CANCER PAIN
     Dosage: 15 MG, 45 MG DAILY DOSE
     Route: 048
     Dates: start: 20141120, end: 20141127
  7. METHADONE [Suspect]
     Active Substance: METHADONE HYDROCHLORIDE
     Dosage: 10 MG, 10 MG DAILY DOSE
     Route: 048
     Dates: start: 20141205, end: 20141205
  8. METHADONE [Suspect]
     Active Substance: METHADONE HYDROCHLORIDE
     Dosage: 5 MG, 10 MG DAILY DOSE
     Route: 048
     Dates: start: 20141210, end: 20141210
  9. TIENAM [Concomitant]
     Active Substance: CILASTATIN SODIUM\IMIPENEM
     Dosage: 2000 MG
     Route: 051
     Dates: end: 20141125
  10. LYRICA [Concomitant]
     Active Substance: PREGABALIN
     Dosage: 75 MG
     Route: 048
     Dates: start: 20141208, end: 20141228
  11. BROTIZOLAM [Concomitant]
     Active Substance: BROTIZOLAM
     Dosage: 0.25 MG
     Route: 048
     Dates: start: 20141125, end: 20141126
  12. METHADONE [Suspect]
     Active Substance: METHADONE HYDROCHLORIDE
     Dosage: 20 MG, 60 MG DAILY DOSE
     Route: 048
     Dates: start: 20141128, end: 20141203
  13. OXIFAST [Concomitant]
     Active Substance: OXYCODONE
     Indication: ANALGESIC THERAPY
     Dosage: 8 MG, PRN
     Route: 051
     Dates: start: 20141119
  14. LENDORMIN [Concomitant]
     Active Substance: BROTIZOLAM
     Dosage: 0.25 MG
     Route: 048
     Dates: end: 20141122
  15. FENTOS [Concomitant]
     Active Substance: FENTANYL
     Indication: ANALGESIC THERAPY
     Dosage: 2 MG
     Route: 062
     Dates: start: 20141220, end: 20141228
  16. BFLUID [Concomitant]
     Active Substance: AMINO ACIDS\DEXTROSE\ELECTROLYTES NOS\VITAMINS
     Dosage: 1000 ML
     Route: 051
     Dates: start: 20141207, end: 20141211
  17. METHADONE [Suspect]
     Active Substance: METHADONE HYDROCHLORIDE
     Dosage: 10 MG, 20 MG DAILY DOSE
     Route: 048
     Dates: start: 20141204, end: 20141204
  18. METHADONE [Suspect]
     Active Substance: METHADONE HYDROCHLORIDE
     Dosage: 10 MG, 20 MG DAILY DOSE
     Route: 048
     Dates: start: 20141206, end: 20141206
  19. METHADONE [Suspect]
     Active Substance: METHADONE HYDROCHLORIDE
     Dosage: 5 MG, 15 MG DAILY DOSE
     Route: 048
     Dates: start: 20141211, end: 20141212
  20. ROPION [Concomitant]
     Active Substance: FLURBIPROFEN AXETIL
     Indication: ANALGESIC THERAPY
     Dosage: 150 MG
     Route: 051
     Dates: end: 20141126
  21. METHADONE [Suspect]
     Active Substance: METHADONE HYDROCHLORIDE
     Dosage: 5 MG, 10 MG DAILY DOSE
     Route: 048
     Dates: start: 20141213, end: 20141226
  22. OXIFAST [Concomitant]
     Active Substance: OXYCODONE
     Dosage: 144 MG
     Route: 051
     Dates: start: 20141127, end: 20141130
  23. KETALAR [Concomitant]
     Active Substance: KETAMINE HYDROCHLORIDE
     Dosage: 150 MG
     Route: 051
     Dates: start: 20141121, end: 20141122
  24. KETALAR [Concomitant]
     Active Substance: KETAMINE HYDROCHLORIDE
     Dosage: 50 MG
     Route: 051
     Dates: start: 20141127, end: 20141201
  25. CYMBALTA [Concomitant]
     Active Substance: DULOXETINE HYDROCHLORIDE
     Dosage: 40 MG
     Route: 048
     Dates: start: 20141201, end: 20141214
  26. LOXOPROFEN [Concomitant]
     Active Substance: LOXOPROFEN
     Indication: ANALGESIC THERAPY
     Dosage: 240 MG
     Route: 048
     Dates: start: 20141126, end: 20141228
  27. OXIFAST [Concomitant]
     Active Substance: OXYCODONE
     Dosage: 96 MG
     Route: 051
     Dates: start: 20141201, end: 20141201
  28. LYRICA [Concomitant]
     Active Substance: PREGABALIN
     Indication: ANALGESIC THERAPY
     Dosage: 600 MG
     Route: 048
     Dates: end: 20141204
  29. CYMBALTA [Concomitant]
     Active Substance: DULOXETINE HYDROCHLORIDE
     Indication: ANALGESIC THERAPY
     Dosage: 20 MG
     Route: 048
     Dates: start: 20141125, end: 20141130
  30. KETALAR [Concomitant]
     Active Substance: KETAMINE HYDROCHLORIDE
     Dosage: 100 MG
     Route: 051
     Dates: start: 20141123, end: 20141126
  31. ELNEOPA NO.1 [Concomitant]
     Dosage: 2000 ML
     Route: 051
  32. OXIFAST [Concomitant]
     Active Substance: OXYCODONE
     Dosage: 48 MG
     Route: 051
     Dates: start: 20141202, end: 20141203
  33. KETALAR [Concomitant]
     Active Substance: KETAMINE HYDROCHLORIDE
     Indication: ANALGESIC THERAPY
     Dosage: 450 MG
     Route: 051
     Dates: end: 20141120
  34. ELNEOPA NO.2 [Concomitant]
     Active Substance: AMINO ACIDS\CARBOHYDRATES\ELECTROLYTES NOS\VITAMINS
     Dosage: 1000 ML
     Route: 051
     Dates: start: 20141124, end: 20141126

REACTIONS (6)
  - Cervix carcinoma [Fatal]
  - Renal impairment [Not Recovered/Not Resolved]
  - Altered state of consciousness [Recovering/Resolving]
  - Decubitus ulcer [Not Recovered/Not Resolved]
  - Jaundice [Not Recovered/Not Resolved]
  - Dysuria [Not Recovered/Not Resolved]

NARRATIVE: CASE EVENT DATE: 20141126
